FAERS Safety Report 8795183 (Version 1)
Quarter: 2012Q4

REPORT INFORMATION
  Report Type: Report from Study
  Country: HU (occurrence: HU)
  Receive Date: 20120917
  Receipt Date: 20120917
  Transmission Date: 20130627
  Serious: Yes (Death, Hospitalization)
  Sender: FDA-Public Use
  Company Number: HU-ROCHE-1125976

PATIENT
  Sex: Female

DRUGS (2)
  1. XELODA [Suspect]
     Indication: PRODUCT USED FOR UNKNOWN INDICATION
     Dosage: 2x4 days
     Route: 048
     Dates: start: 20091120
  2. BONDRONAT [Concomitant]
     Route: 065

REACTIONS (2)
  - Death [Fatal]
  - Malaise [Unknown]
